FAERS Safety Report 4682442-2 (Version None)
Quarter: 2005Q2

REPORT INFORMATION
  Report Type: 
  Country: None (occurrence: None)
  Receive Date: 20050531
  Receipt Date: 20050224
  Transmission Date: 20051028
  Serious: No
  Sender: FDA-Public Use
  Company Number: 2005BI004630

PATIENT
  Sex: Female

DRUGS (2)
  1. AMEVIVE [Suspect]
     Indication: PSORIASIS
     Dosage: 15 MG; QW; IM  15 MG; QW; IM
     Route: 030
     Dates: start: 20040301, end: 20040601
  2. AMEVIVE [Suspect]
     Indication: PSORIASIS
     Dosage: 15 MG; QW; IM  15 MG; QW; IM
     Route: 030
     Dates: start: 20040901, end: 20041201

REACTIONS (5)
  - DRUG INEFFECTIVE [None]
  - FALL [None]
  - INJECTION SITE HAEMORRHAGE [None]
  - PSORIASIS [None]
  - SKIN BURNING SENSATION [None]
